FAERS Safety Report 25985858 (Version 1)
Quarter: 2025Q4

REPORT INFORMATION
  Report Type: Spontaneous
  Country: EU (occurrence: EU)
  Receive Date: 20251031
  Receipt Date: 20251031
  Transmission Date: 20260118
  Serious: Yes (Hospitalization)
  Sender: BRISTOL-MYERS SQUIBB COMPANY
  Company Number: EU-ROCHE-10000413506

PATIENT
  Age: 44 Year
  Sex: Female
  Weight: 60 kg

DRUGS (9)
  1. PACLITAXEL [Suspect]
     Active Substance: PACLITAXEL
     Indication: Triple negative breast cancer
     Dosage: ON 18-APR-2025, RECEIVED MOST RECENT DOSE 100 MG/M2
     Route: 042
     Dates: start: 20250131, end: 20250418
  2. ATEZOLIZUMAB [Suspect]
     Active Substance: ATEZOLIZUMAB
     Indication: Triple negative breast cancer
     Dosage: ON 27-JUN-2025, RECEIVED MOST RECENT DOSE 1200 MG
     Route: 042
     Dates: start: 20250131, end: 20250627
  3. TIRAGOLUMAB [Suspect]
     Active Substance: TIRAGOLUMAB
     Indication: Triple negative breast cancer
     Dosage: ON 27-JUN-2025, RECEIVED MOST RECENT DOSE 600 MG
     Route: 042
     Dates: start: 20250131, end: 20250627
  4. CARBOPLATIN [Suspect]
     Active Substance: CARBOPLATIN
     Indication: Triple negative breast cancer
     Dosage: ON 04-APR-2025, RECEIVED MOST RECENT DOSE 520 MG/M2
     Route: 042
     Dates: start: 20250131, end: 20250404
  5. CYCLOPHOSPHAMIDE [Suspect]
     Active Substance: CYCLOPHOSPHAMIDE
     Indication: Triple negative breast cancer
     Dosage: ON 27-JUN-2025 MOST RECENT DOSE 600 MG/M2
     Route: 042
     Dates: start: 20250425, end: 20250627
  6. DOXORUBICIN [Suspect]
     Active Substance: DOXORUBICIN
     Indication: Triple negative breast cancer
     Dosage: ON 27-JUN-2025, RECEIVED MOST RECENT DOSE ON 60 MG/M2
     Route: 042
     Dates: start: 20250425, end: 20250627
  7. PREDNISONE [Concomitant]
     Active Substance: PREDNISONE
     Indication: Asthma
  8. ALPRAZOLAM [Concomitant]
     Active Substance: ALPRAZOLAM
     Indication: Product used for unknown indication
  9. PEGFILGRASTIM [Concomitant]
     Active Substance: PEGFILGRASTIM
     Indication: Pain

REACTIONS (1)
  - Ill-defined disorder [Not Recovered/Not Resolved]

NARRATIVE: CASE EVENT DATE: 20251013
